FAERS Safety Report 12920515 (Version 9)
Quarter: 2017Q2

REPORT INFORMATION
  Report Type: Spontaneous
  Country: US (occurrence: US)
  Receive Date: 20161108
  Receipt Date: 20170619
  Transmission Date: 20170830
  Serious: Yes (Congenital Anomaly, Other)
  Sender: FDA-Public Use
  Company Number: PHEH2016US028697

PATIENT
  Sex: Male

DRUGS (2)
  1. ZOFRAN [Suspect]
     Active Substance: ONDANSETRON HYDROCHLORIDE
     Indication: FOETAL EXPOSURE DURING PREGNANCY
     Dosage: MOTHER DOSE: 01 DF, EVERY EIGHT HOURS (Q8H)
     Route: 064
  2. ONDANSETRON HYDROCHLORIDE. [Suspect]
     Active Substance: ONDANSETRON HYDROCHLORIDE
     Indication: FOETAL EXPOSURE DURING PREGNANCY
     Dosage: MOTHERS DOSE: 04 MG, Q8H
     Route: 064

REACTIONS (31)
  - Right ventricular dilatation [Unknown]
  - Cardiomegaly [Unknown]
  - Pulmonary artery stenosis congenital [Unknown]
  - Ventricular hypoplasia [Unknown]
  - Hypotonia neonatal [Unknown]
  - Endocarditis bacterial [Unknown]
  - Right ventricular hypertension [Unknown]
  - Cerebral disorder [Unknown]
  - Torticollis [Unknown]
  - Foetal exposure during pregnancy [Unknown]
  - Congenital tricuspid valve incompetence [Unknown]
  - Congenital tricuspid valve stenosis [Unknown]
  - Gross motor delay [Unknown]
  - Mitral valve incompetence [Unknown]
  - Gastrooesophageal reflux disease [Unknown]
  - Right ventricular hypertrophy [Unknown]
  - Heart disease congenital [Unknown]
  - Pulmonary valve incompetence [Unknown]
  - Tricuspid valve incompetence [Unknown]
  - Pleural effusion [Unknown]
  - Hyperkeratosis [Unknown]
  - Pulmonary valve stenosis congenital [Unknown]
  - Brain injury [Unknown]
  - Bacteraemia [Unknown]
  - Atelectasis neonatal [Unknown]
  - Foetal cardiac disorder [Unknown]
  - Atrial septal defect [Unknown]
  - Patent ductus arteriosus [Unknown]
  - Injury [Unknown]
  - Developmental delay [Unknown]
  - Coordination abnormal [Unknown]
